FAERS Safety Report 25647399 (Version 1)
Quarter: 2025Q3

REPORT INFORMATION
  Report Type: Spontaneous
  Country: US (occurrence: US)
  Receive Date: 20250806
  Receipt Date: 20250806
  Transmission Date: 20251021
  Serious: Yes (Other)
  Sender: HETERO
  Company Number: US-AMAROX PHARMA-HET2025US04343

PATIENT
  Age: 71 Year
  Sex: Female

DRUGS (1)
  1. CAPECITABINE [Suspect]
     Active Substance: CAPECITABINE
     Indication: Metastatic neoplasm
     Route: 065

REACTIONS (2)
  - Colitis microscopic [Unknown]
  - Skin hyperpigmentation [Unknown]
